FAERS Safety Report 20966373 (Version 2)
Quarter: 2022Q3

REPORT INFORMATION
  Report Type: Spontaneous
  Country: CA (occurrence: CA)
  Receive Date: 20220616
  Receipt Date: 20220701
  Transmission Date: 20221027
  Serious: Yes (Hospitalization)
  Sender: FDA-Public Use
  Company Number: CA-TEVA-2022-CA-2045643

PATIENT
  Age: 70 Year
  Sex: Female

DRUGS (11)
  1. CISPLATIN [Interacting]
     Active Substance: CISPLATIN
     Indication: Non-small cell lung cancer
     Route: 065
  2. NABILONE [Interacting]
     Active Substance: NABILONE
     Indication: Neuralgia
     Dosage: .5 MILLIGRAM DAILY;
     Route: 048
  3. NABILONE [Interacting]
     Active Substance: NABILONE
     Dosage: 1 MILLIGRAM DAILY;
     Route: 048
  4. NABILONE [Interacting]
     Active Substance: NABILONE
     Dosage: 2 MILLIGRAM DAILY;
     Route: 048
  5. HALDOL [Suspect]
     Active Substance: HALOPERIDOL
     Indication: Dementia
     Route: 065
  6. PACLITAXEL [Interacting]
     Active Substance: PACLITAXEL
     Indication: Non-small cell lung cancer
     Route: 065
  7. DOCETAXEL [Suspect]
     Active Substance: DOCETAXEL
     Indication: Non-small cell lung cancer
     Route: 065
  8. BUPROPION [Concomitant]
     Active Substance: BUPROPION
     Indication: Product used for unknown indication
     Route: 065
  9. BISOPROLOL [Concomitant]
     Active Substance: BISOPROLOL
     Indication: Product used for unknown indication
     Route: 065
  10. LORAZEPAM [Concomitant]
     Active Substance: LORAZEPAM
     Indication: Product used for unknown indication
     Route: 065
  11. DOMPERIDONE [Concomitant]
     Active Substance: DOMPERIDONE
     Indication: Product used for unknown indication
     Route: 065

REACTIONS (12)
  - Cannabinoid hyperemesis syndrome [Recovered/Resolved]
  - Renal function test abnormal [Recovered/Resolved]
  - Alopecia [Unknown]
  - Decreased appetite [Unknown]
  - Diarrhoea [Unknown]
  - Neuralgia [Recovered/Resolved]
  - Oral pain [Unknown]
  - Nausea [Recovered/Resolved]
  - Vomiting [Recovered/Resolved]
  - Somnolence [Unknown]
  - Agitation [Unknown]
  - Drug interaction [Unknown]
